FAERS Safety Report 9213028 (Version 1)
Quarter: 2013Q2

REPORT INFORMATION
  Report Type: Spontaneous
  Country: US (occurrence: None)
  Receive Date: 20130403
  Receipt Date: 20130403
  Transmission Date: 20140414
  Serious: Yes (Other)
  Sender: FDA-Public Use
  Company Number: None

PATIENT
  Age: 42 Year
  Sex: Female
  Weight: 64.41 kg

DRUGS (1)
  1. TYLENOL [Suspect]
     Indication: FEMALE GENITAL OPERATION
     Route: 042
     Dates: start: 20130218, end: 20130218

REACTIONS (1)
  - Thrombosis [None]
